FAERS Safety Report 12217619 (Version 1)
Quarter: 2016Q1

REPORT INFORMATION
  Report Type: Spontaneous
  Country: BR (occurrence: BR)
  Receive Date: 20160329
  Receipt Date: 20160329
  Transmission Date: 20160526
  Serious: Yes (Other)
  Sender: FDA-Public Use
  Company Number: PHHY2016BR040973

PATIENT
  Age: 66 Year
  Sex: Male
  Weight: 73 kg

DRUGS (5)
  1. EXELON PATCH [Suspect]
     Active Substance: RIVASTIGMINE
     Dosage: 9.5 MG (PATCH: 18 MG/10 CM2), QD
     Route: 062
     Dates: start: 2014, end: 2015
  2. EXELON [Suspect]
     Active Substance: RIVASTIGMINE TARTRATE
     Indication: DEMENTIA ALZHEIMER^S TYPE
     Dosage: 2 DF, QD
     Route: 048
     Dates: start: 2010, end: 2012
  3. EXELON PATCH [Suspect]
     Active Substance: RIVASTIGMINE
     Dosage: PATCH: 18 MG/10 CM2 CUT INTO HALF
     Route: 062
  4. EXELON PATCH [Suspect]
     Active Substance: RIVASTIGMINE
     Dosage: 13.3 MG (PATCH: 27 MG/15 CM2), QD
     Route: 062
     Dates: start: 2015, end: 201601
  5. EXELON PATCH [Suspect]
     Active Substance: RIVASTIGMINE
     Indication: DEMENTIA ALZHEIMER^S TYPE
     Dosage: 4.6 MG (PATCH: 9 MG/5 CM2), QD
     Route: 062
     Dates: start: 2012, end: 2014

REACTIONS (4)
  - Multiple system atrophy [Unknown]
  - Wrong technique in product usage process [Unknown]
  - Gastric disorder [Not Recovered/Not Resolved]
  - Eructation [Not Recovered/Not Resolved]

NARRATIVE: CASE EVENT DATE: 201511
